FAERS Safety Report 25761152 (Version 1)
Quarter: 2025Q3

REPORT INFORMATION
  Report Type: Report from Study
  Country: JP (occurrence: JP)
  Receive Date: 20250904
  Receipt Date: 20250904
  Transmission Date: 20251021
  Serious: Yes (Hospitalization)
  Sender: EISAI
  Company Number: JP-Eisai-202506814_LEN-HCC_P_1

PATIENT
  Age: 70 Year
  Sex: Male

DRUGS (1)
  1. LENVIMA [Suspect]
     Active Substance: LENVATINIB
     Indication: Hepatocellular carcinoma
     Route: 048
     Dates: start: 20250226

REACTIONS (1)
  - Cholangitis [Recovering/Resolving]

NARRATIVE: CASE EVENT DATE: 20250311
